FAERS Safety Report 4956073-0 (Version None)
Quarter: 2006Q1

REPORT INFORMATION
  Report Type: 
  Country: None (occurrence: None)
  Receive Date: 20060328
  Receipt Date: 20060320
  Transmission Date: 20060701
  Serious: Yes (Other)
  Sender: FDA-Public Use
  Company Number: US-MERCK-0603USA03176

PATIENT
  Age: 64 Year
  Sex: Male

DRUGS (13)
  1. ZOCOR [Suspect]
     Indication: HYPERCHOLESTEROLAEMIA
     Route: 048
     Dates: start: 20010101
  2. COZAAR [Concomitant]
     Route: 048
  3. ATENOLOL [Concomitant]
     Route: 065
  4. PLENDIL [Concomitant]
     Route: 065
  5. ALLOPURINOL [Concomitant]
     Route: 065
  6. HYTRIN [Concomitant]
     Route: 065
  7. GLUCOSAMINE [Concomitant]
     Route: 065
  8. VITAMINS (UNSPECIFIED) [Concomitant]
     Route: 065
  9. ASPIRIN [Concomitant]
     Route: 065
  10. MAXZIDE [Concomitant]
     Route: 065
  11. DETROL LA [Concomitant]
     Route: 065
  12. VOLTAREN [Concomitant]
     Route: 065
  13. UBIDECARENONE [Concomitant]
     Route: 065

REACTIONS (2)
  - ARTHROPATHY [None]
  - JOINT STIFFNESS [None]
